FAERS Safety Report 23848390 (Version 1)
Quarter: 2024Q2

REPORT INFORMATION
  Report Type: Spontaneous
  Country: US (occurrence: US)
  Receive Date: 20240513
  Receipt Date: 20240513
  Transmission Date: 20240716
  Serious: No
  Sender: FDA-Public Use
  Company Number: US-Merck Healthcare KGaA-2024025022

PATIENT
  Sex: Male

DRUGS (1)
  1. SEROSTIM [Suspect]
     Active Substance: SOMATROPIN
     Indication: HIV infection

REACTIONS (1)
  - Skin discolouration [Unknown]
